FAERS Safety Report 12115403 (Version 2)
Quarter: 2016Q1

REPORT INFORMATION
  Report Type: Report from Study
  Country: US (occurrence: US)
  Receive Date: 20160225
  Receipt Date: 20160309
  Transmission Date: 20160526
  Serious: Yes (Hospitalization)
  Sender: FDA-Public Use
  Company Number: US-EISAI MEDICAL RESEARCH-EC-2015-013171

PATIENT
  Age: 84 Year
  Sex: Female
  Weight: 62 kg

DRUGS (22)
  1. LEVOTHYROXINE. [Concomitant]
     Active Substance: LEVOTHYROXINE
  2. SENOKOT-S [Concomitant]
     Active Substance: DOCUSATE SODIUM\SENNOSIDES
  3. GAS-X [Concomitant]
     Active Substance: DIMETHICONE
  4. TYLENOL [Concomitant]
     Active Substance: ACETAMINOPHEN
  5. XARELTO [Concomitant]
     Active Substance: RIVAROXABAN
  6. VITAMIN B12 [Concomitant]
     Active Substance: CYANOCOBALAMIN
  7. LENVIMA [Suspect]
     Active Substance: LENVATINIB
     Indication: THYROID CANCER
     Route: 048
     Dates: start: 20151206, end: 201512
  8. XARELTO [Concomitant]
     Active Substance: RIVAROXABAN
  9. BOOST [Concomitant]
  10. LENVIMA [Suspect]
     Active Substance: LENVATINIB
     Route: 048
     Dates: start: 2016, end: 201603
  11. TIZANIDINE. [Concomitant]
     Active Substance: TIZANIDINE
  12. CALTRATE WITH VITAMIN D [Concomitant]
     Active Substance: CALCIUM CARBONATE\CHOLECALCIFEROL
  13. PRILOSEC [Concomitant]
     Active Substance: OMEPRAZOLE MAGNESIUM
  14. GABAPENTIN. [Concomitant]
     Active Substance: GABAPENTIN
  15. AMLODIPINE BESYLATE. [Concomitant]
     Active Substance: AMLODIPINE BESYLATE
  16. SIMVASTATIN. [Concomitant]
     Active Substance: SIMVASTATIN
  17. MULTIVITAMIN 50 PLUS [Concomitant]
  18. SULFAMETHOXAZOLE-TRIMETHOPRIM [Concomitant]
     Active Substance: SULFAMETHOXAZOLE\TRIMETHOPRIM
  19. COLACE [Concomitant]
     Active Substance: DOCUSATE SODIUM
  20. LENVIMA [Suspect]
     Active Substance: LENVATINIB
     Route: 048
     Dates: start: 20151219, end: 20160211
  21. TAMSULOSIN [Concomitant]
     Active Substance: TAMSULOSIN
  22. VITAMIN B12 [Concomitant]
     Active Substance: CYANOCOBALAMIN

REACTIONS (10)
  - Urinary tract infection [Unknown]
  - Hypotension [Recovered/Resolved]
  - Dry mouth [Unknown]
  - Blood pressure fluctuation [Recovering/Resolving]
  - Oral herpes [Unknown]
  - Metastases to central nervous system [Not Recovered/Not Resolved]
  - Headache [Unknown]
  - Decreased appetite [Unknown]
  - Diarrhoea [Unknown]
  - Oral discomfort [Unknown]

NARRATIVE: CASE EVENT DATE: 2015
